FAERS Safety Report 8322944-0 (Version None)
Quarter: 2012Q2

REPORT INFORMATION
  Report Type: 
  Country: None (occurrence: None)
  Receive Date: 20120430
  Receipt Date: 20120419
  Transmission Date: 20120825
  Serious: Yes (Hospitalization, Other)
  Sender: FDA-Public Use
  Company Number: US-ELI_LILLY_AND_COMPANY-US201203006019

PATIENT
  Sex: Female

DRUGS (9)
  1. FUROSEMIDE [Concomitant]
     Dosage: UNK
  2. FORTEO [Suspect]
     Indication: OSTEOPOROSIS
     Dosage: 20 UG, QD
     Dates: start: 20120301
  3. FORTEO [Suspect]
     Dosage: 20 UG, QD
     Dates: end: 20120321
  4. LIPITOR [Concomitant]
  5. WARFARIN SODIUM [Concomitant]
     Dosage: UNK
     Dates: end: 20120403
  6. SUCRALFATE [Concomitant]
     Indication: GASTRIC ULCER
     Dosage: UNK
     Dates: end: 20120403
  7. FORTEO [Suspect]
     Dosage: 20 UG, QD
     Dates: start: 20120304
  8. LISINOPRIL [Concomitant]
     Dosage: UNK
     Dates: end: 20120403
  9. AMIODARONE HCL [Concomitant]

REACTIONS (8)
  - NAUSEA [None]
  - ULCER HAEMORRHAGE [None]
  - GASTROOESOPHAGEAL REFLUX DISEASE [None]
  - MUSCULAR WEAKNESS [None]
  - FALL [None]
  - RENAL FAILURE ACUTE [None]
  - VOMITING [None]
  - DEHYDRATION [None]
